FAERS Safety Report 4860265-9 (Version None)
Quarter: 2005Q4

REPORT INFORMATION
  Report Type: 
  Country: None (occurrence: None)
  Receive Date: 20051219
  Receipt Date: 20051116
  Transmission Date: 20060501
  Serious: Yes (Hospitalization)
  Sender: FDA-Public Use
  Company Number: US-ROCHE-425304

PATIENT
  Age: 53 Year
  Sex: Male

DRUGS (14)
  1. PEGASYS [Suspect]
     Dosage: ROUTE: INJECTABLE.
     Route: 065
     Dates: start: 20050215
  2. COPEGUS [Suspect]
     Route: 048
     Dates: start: 20050215
  3. FELODIPINE [Concomitant]
     Route: 048
  4. BENAZEPRIL HCL [Concomitant]
     Route: 048
  5. METFORMIN [Concomitant]
     Route: 048
  6. GLYBURIDE [Concomitant]
     Route: 048
  7. ZOCOR [Concomitant]
     Route: 048
  8. RISPERDAL [Concomitant]
     Indication: NERVOUSNESS
     Route: 048
  9. PROZAC [Concomitant]
     Indication: NERVOUSNESS
     Route: 048
  10. CLONAZEPAM [Concomitant]
     Indication: PANIC ATTACK
     Route: 048
  11. VIAGRA [Concomitant]
     Route: 048
  12. LEVITRA [Concomitant]
     Route: 048
  13. CIALIS [Concomitant]
     Route: 048
  14. CAVERJECT [Concomitant]
     Dosage: ROUTE: INJECTABLE.

REACTIONS (3)
  - DRUG INEFFECTIVE [None]
  - ERECTILE DYSFUNCTION [None]
  - ERECTION INCREASED [None]
